FAERS Safety Report 5091352-0 (Version None)
Quarter: 2006Q3

REPORT INFORMATION
  Report Type: 
  Country: None (occurrence: None)
  Receive Date: 20060824
  Receipt Date: 20060818
  Transmission Date: 20061208
  Serious: Yes (Hospitalization)
  Sender: FDA-Public Use
  Company Number: SU-2006-005321

PATIENT
  Age: 67 Year
  Sex: Male

DRUGS (1)
  1. BENICAR [Suspect]
     Indication: BLOOD PRESSURE
     Dosage: MG PO
     Route: 048

REACTIONS (2)
  - DIARRHOEA [None]
  - HYPOTENSION [None]
